FAERS Safety Report 7704649-X (Version None)
Quarter: 2011Q3

REPORT INFORMATION
  Report Type: 
  Country: None (occurrence: None)
  Receive Date: 20110823
  Receipt Date: 20110818
  Transmission Date: 20111222
  Serious: Yes (Other)
  Sender: FDA-Public Use
  Company Number: FR-GLAXOSMITHKLINE-B0741322A

PATIENT
  Sex: Female

DRUGS (1)
  1. NABUMETONE [Suspect]
     Indication: SCIATICA
     Dosage: 1G TWICE PER DAY
     Route: 048
     Dates: start: 20110628, end: 20110704

REACTIONS (1)
  - HEPATITIS [None]
